FAERS Safety Report 4283910-8 (Version None)
Quarter: 2004Q1

REPORT INFORMATION
  Report Type: 
  Country: None (occurrence: None)
  Receive Date: 20040130
  Receipt Date: 20040113
  Transmission Date: 20041129
  Serious: Yes (Hospitalization)
  Sender: FDA-Public Use
  Company Number: USA030843773

PATIENT
  Age: 74 Year
  Sex: Female

DRUGS (4)
  1. FORTEO [Suspect]
     Indication: OSTEOPOROSIS
     Dosage: 20 UG/DAY
     Dates: start: 20030301
  2. VERAPAMIL [Concomitant]
  3. PREDNISONE [Concomitant]
  4. NEXIUM [Concomitant]

REACTIONS (1)
  - ASEPTIC NECROSIS BONE [None]
